FAERS Safety Report 24881882 (Version 1)
Quarter: 2025Q1

REPORT INFORMATION
  Report Type: Spontaneous
  Country: US (occurrence: US)
  Receive Date: 20250124
  Receipt Date: 20250124
  Transmission Date: 20250409
  Serious: No
  Sender: GLAXOSMITHKLINE
  Company Number: US-GSK-US2025GSK008476

PATIENT
  Age: 70 Year
  Sex: Female
  Weight: 83.9 kg

DRUGS (1)
  1. BUPROPION HYDROCHLORIDE XL [Suspect]
     Active Substance: BUPROPION HYDROCHLORIDE
     Indication: Weight control
     Dosage: 300 MG, QD
     Dates: start: 20240520, end: 20241109

REACTIONS (13)
  - Dyskinesia [Unknown]
  - Logorrhoea [Unknown]
  - Feelings of worthlessness [Unknown]
  - Depressed mood [Unknown]
  - Vision blurred [Unknown]
  - Urinary tract infection [Unknown]
  - Mania [Unknown]
  - Muscle twitching [Unknown]
  - Anxiety [Unknown]
  - Confusional state [Unknown]
  - Insomnia [Unknown]
  - Tinnitus [Unknown]
  - Product use in unapproved indication [Unknown]

NARRATIVE: CASE EVENT DATE: 20240101
